FAERS Safety Report 5416862-5 (Version None)
Quarter: 2007Q3

REPORT INFORMATION
  Report Type: 
  Country: None (occurrence: None)
  Receive Date: 20070815
  Receipt Date: 20070815
  Transmission Date: 20080115
  Serious: No
  Sender: FDA-Public Use
  Company Number: None

PATIENT
  Sex: Female
  Weight: 52.7 kg

DRUGS (3)
  1. CARBOPLATIN [Suspect]
     Dosage: 715 MG
  2. TAXOTERE [Suspect]
     Dosage: 116 MG
  3. TAXOL [Suspect]
     Dosage: 92 MG

REACTIONS (1)
  - NEUTROPENIA [None]
